FAERS Safety Report 12968201 (Version 1)
Quarter: 2016Q4

REPORT INFORMATION
  Report Type: Spontaneous
  Country: JP (occurrence: JP)
  Receive Date: 20161123
  Receipt Date: 20161123
  Transmission Date: 20170207
  Serious: Yes (Other)
  Sender: FDA-Public Use
  Company Number: JP-TEVA-2016-JP-002694J

PATIENT
  Age: 70 Year
  Sex: Female

DRUGS (26)
  1. VELCADE [Suspect]
     Active Substance: BORTEZOMIB
     Dosage: 1.3 MG/M2 DAILY;
     Route: 058
     Dates: start: 20160122, end: 20160122
  2. VELCADE [Suspect]
     Active Substance: BORTEZOMIB
     Dosage: 1.3 MG/M2 DAILY;
     Route: 058
     Dates: start: 20160307, end: 20160307
  3. VELCADE [Suspect]
     Active Substance: BORTEZOMIB
     Dosage: 1.3 MG/M2 DAILY;
     Route: 058
     Dates: start: 20160324, end: 20160324
  4. VELCADE [Suspect]
     Active Substance: BORTEZOMIB
     Dosage: 1.3 MG/M2 DAILY;
     Route: 058
     Dates: start: 20160516, end: 20160516
  5. DOXORUBICIN HYDROCHLORIDE. [Suspect]
     Active Substance: DOXORUBICIN HYDROCHLORIDE
     Indication: PRODUCT USED FOR UNKNOWN INDICATION
     Dosage: 500 MILLIGRAM DAILY;
     Route: 042
     Dates: start: 20160113, end: 20160512
  6. PREDNISOLONE TABLETS 5MG. [Suspect]
     Active Substance: PREDNISOLONE
     Indication: PRODUCT USED FOR UNKNOWN INDICATION
     Route: 065
  7. VELCADE [Suspect]
     Active Substance: BORTEZOMIB
     Dosage: 1.3 MG/M2 DAILY;
     Route: 058
     Dates: start: 20160118, end: 20160118
  8. VELCADE [Suspect]
     Active Substance: BORTEZOMIB
     Dosage: 1.3 MG/M2 DAILY;
     Route: 058
     Dates: start: 20160125, end: 20160125
  9. VELCADE [Suspect]
     Active Substance: BORTEZOMIB
     Dosage: 1.3 MG/M2 DAILY;
     Route: 058
     Dates: start: 20160209, end: 20160209
  10. VELCADE [Suspect]
     Active Substance: BORTEZOMIB
     Dosage: 1.3 MG/M2 DAILY;
     Route: 058
     Dates: start: 20160314, end: 20160314
  11. VELCADE [Suspect]
     Active Substance: BORTEZOMIB
     Dosage: 1.3 MG/M2 DAILY;
     Route: 058
     Dates: start: 20160404, end: 20160404
  12. VELCADE [Suspect]
     Active Substance: BORTEZOMIB
     Dosage: 1.3 MG/M2 DAILY;
     Route: 058
     Dates: start: 20160512, end: 20160512
  13. VELCADE [Suspect]
     Active Substance: BORTEZOMIB
     Dosage: 1.3 MG/M2 DAILY;
     Route: 058
     Dates: start: 20160519, end: 20160519
  14. VELCADE [Suspect]
     Active Substance: BORTEZOMIB
     Dosage: 1.3 MG/M2 DAILY;
     Route: 058
     Dates: start: 20160224, end: 20160224
  15. VELCADE [Suspect]
     Active Substance: BORTEZOMIB
     Dosage: 1.3 MG/M2 DAILY;
     Route: 058
     Dates: start: 20160310, end: 20160310
  16. VELCADE [Suspect]
     Active Substance: BORTEZOMIB
     Dosage: 1.3 MG/M2 DAILY;
     Route: 058
     Dates: start: 20160331, end: 20160331
  17. VELCADE [Suspect]
     Active Substance: BORTEZOMIB
     Dosage: 1.3 MG/M2 DAILY;
     Route: 058
     Dates: start: 20160530, end: 20160530
  18. VELCADE [Suspect]
     Active Substance: BORTEZOMIB
     Dosage: 1.3 MG/M2 DAILY;
     Route: 058
     Dates: start: 20160328, end: 20160328
  19. VELCADE [Suspect]
     Active Substance: BORTEZOMIB
     Dosage: 1.3 MG/M2 DAILY;
     Route: 058
     Dates: start: 20160215, end: 20160215
  20. VELCADE [Suspect]
     Active Substance: BORTEZOMIB
     Dosage: 1.3 MG/M2 DAILY;
     Route: 058
     Dates: start: 20160418, end: 20160418
  21. VELCADE [Suspect]
     Active Substance: BORTEZOMIB
     Dosage: 1.3 MG/M2 DAILY;
     Route: 058
     Dates: start: 20160414, end: 20160414
  22. VELCADE [Suspect]
     Active Substance: BORTEZOMIB
     Dosage: 1.3 MG/M2 DAILY;
     Route: 058
     Dates: start: 20160421, end: 20160421
  23. RITUXAN [Suspect]
     Active Substance: RITUXIMAB
     Indication: PRODUCT USED FOR UNKNOWN INDICATION
     Dosage: 500 MILLIGRAM DAILY;
     Route: 065
     Dates: start: 20160112, end: 20160511
  24. VELCADE [Suspect]
     Active Substance: BORTEZOMIB
     Indication: MANTLE CELL LYMPHOMA
     Dosage: 1.3 MG/M2 DAILY;
     Route: 058
     Dates: start: 20160113, end: 20160113
  25. VELCADE [Suspect]
     Active Substance: BORTEZOMIB
     Dosage: 1.3 MG/M2 DAILY;
     Route: 058
     Dates: start: 20160303, end: 20160303
  26. ENDOXAN [Suspect]
     Active Substance: CYCLOPHOSPHAMIDE
     Indication: PRODUCT USED FOR UNKNOWN INDICATION
     Dosage: 1000 MILLIGRAM DAILY;
     Route: 065
     Dates: start: 20160113, end: 20160512

REACTIONS (3)
  - Platelet count decreased [Recovered/Resolved]
  - Febrile neutropenia [Recovered/Resolved]
  - Neutrophil count decreased [Recovered/Resolved]

NARRATIVE: CASE EVENT DATE: 20160125
